FAERS Safety Report 4867328-2 (Version None)
Quarter: 2005Q4

REPORT INFORMATION
  Report Type: 
  Country: None (occurrence: None)
  Receive Date: 20051222
  Receipt Date: 20051201
  Transmission Date: 20060501
  Serious: Yes (Other)
  Sender: FDA-Public Use
  Company Number: US_0509122487

PATIENT
  Age: 77 Year
  Sex: Male
  Weight: 105.7 kg

DRUGS (10)
  1. ZYPREXA [Suspect]
     Indication: MAJOR DEPRESSION
     Dosage: 5 MG, DAILY (1/D), ORAL
     Route: 048
     Dates: start: 20040601, end: 20050721
  2. EFFEXOR XR [Concomitant]
  3. METOPROLOL SUCCINATE [Concomitant]
  4. LISNIOPRIL (LISINOPRIL) [Concomitant]
  5. LEVOTHYROXINE SODIUM [Concomitant]
  6. PREVACID [Concomitant]
  7. ZOCOR [Concomitant]
  8. MULTIVITAMINS (ASCORBIC ACID, ERGOCALCIFEROL, FOLIC ACID, NICOTINAMIDE [Concomitant]
  9. ASPIRIN [Concomitant]
  10. FLOMAX [Concomitant]

REACTIONS (3)
  - DIABETES MELLITUS NON-INSULIN-DEPENDENT [None]
  - PROSTATE CANCER [None]
  - WEIGHT INCREASED [None]
